FAERS Safety Report 24890444 (Version 1)
Quarter: 2025Q1

REPORT INFORMATION
  Report Type: Spontaneous
  Country: US (occurrence: US)
  Receive Date: 20250127
  Receipt Date: 20250127
  Transmission Date: 20250409
  Serious: Yes (Disabling, Other)
  Sender: SPECGX
  Company Number: US-SPECGX-T202500004

PATIENT
  Age: 39 Year
  Sex: Female

DRUGS (1)
  1. ACETAMINOPHEN\HYDROCODONE [Suspect]
     Active Substance: ACETAMINOPHEN\HYDROCODONE
     Indication: Pain
     Route: 065

REACTIONS (15)
  - Imprisonment [Unknown]
  - Drug dependence [Unknown]
  - Feeling abnormal [Unknown]
  - Muscular weakness [Unknown]
  - Disturbance in attention [Unknown]
  - Tremor [Unknown]
  - Dysgeusia [Unknown]
  - Decreased appetite [Unknown]
  - Irritability [Unknown]
  - Anger [Unknown]
  - Food aversion [Unknown]
  - Product taste abnormal [Unknown]
  - Fatigue [Unknown]
  - Victim of abuse [Unknown]
  - Physical abuse [Unknown]

NARRATIVE: CASE EVENT DATE: 20250103
